FAERS Safety Report 7888540-4 (Version None)
Quarter: 2011Q4

REPORT INFORMATION
  Report Type: 
  Country: None (occurrence: None)
  Receive Date: 20111101
  Receipt Date: 20111017
  Transmission Date: 20120403
  Serious: Yes (Other)
  Sender: FDA-Public Use
  Company Number: JP-2011-11605

PATIENT
  Age: 51 Year
  Sex: Male
  Weight: 65 kg

DRUGS (9)
  1. BEPRICOR (BEPRIDIL HYDROCHLORIDE HYDRATE) [Concomitant]
  2. PIMOBENDAN (PIMOBENDAN) [Concomitant]
  3. TRICHLORMETHIAZIDE [Concomitant]
  4. ARTIST (CARVEDILOL) [Concomitant]
  5. HANP (CARPERITIDE) INJECTION [Suspect]
     Dosage: 0.0125 MCG/KG/MIN, IV DRIP
     Route: 041
     Dates: end: 20110922
  6. SAMSCA [Suspect]
     Indication: CARDIAC FAILURE
     Dosage: 7.5 MG MILLIGRAM(S), QD, ORAL
     Route: 048
     Dates: start: 20110922
  7. SAMSCA [Suspect]
     Indication: CONGESTIVE CARDIOMYOPATHY
     Dosage: 7.5 MG MILLIGRAM(S), QD, ORAL
     Route: 048
     Dates: start: 20110922
  8. WARFARIN (WARFARIN POTASSIUM) [Concomitant]
  9. LASIX [Concomitant]

REACTIONS (4)
  - BLOOD PRESSURE DECREASED [None]
  - URINE OUTPUT INCREASED [None]
  - VENTRICULAR TACHYCARDIA [None]
  - HYPOKALAEMIA [None]
